FAERS Safety Report 4310753-9 (Version None)
Quarter: 2004Q1

REPORT INFORMATION
  Report Type: 
  Country: None (occurrence: None)
  Receive Date: 20040303
  Receipt Date: 20040224
  Transmission Date: 20041129
  Serious: Yes (Hospitalization)
  Sender: FDA-Public Use
  Company Number: WAES 0402FRA00079

PATIENT
  Age: 53 Year
  Sex: Male

DRUGS (5)
  1. VIOXX [Suspect]
     Indication: BACK PAIN
     Route: 048
     Dates: start: 20020401, end: 20020401
  2. VIOXX [Suspect]
     Route: 048
     Dates: start: 20021101, end: 20021101
  3. VIOXX [Suspect]
     Route: 048
     Dates: start: 20031101, end: 20031101
  4. VIOXX [Suspect]
     Route: 048
     Dates: start: 20031201, end: 20031201
  5. VALPROATE SODIUM [Concomitant]
     Indication: EPILEPSY
     Dates: end: 20020101

REACTIONS (3)
  - CONDITION AGGRAVATED [None]
  - OEDEMA PERIPHERAL [None]
  - PULMONARY EMBOLISM [None]
